FAERS Safety Report 6898859-1 (Version None)
Quarter: 2010Q3

REPORT INFORMATION
  Report Type: 
  Country: None (occurrence: None)
  Receive Date: 20100802
  Receipt Date: 20071213
  Transmission Date: 20110219
  Serious: Yes (Other)
  Sender: FDA-Public Use
  Company Number: US-PFIZER INC-2007053244

PATIENT
  Sex: Female

DRUGS (2)
  1. LYRICA [Suspect]
     Indication: RADICULOPATHY
  2. LYRICA [Suspect]
     Indication: BONE DISORDER

REACTIONS (5)
  - GAIT DISTURBANCE [None]
  - LETHARGY [None]
  - SPEECH DISORDER [None]
  - TREMOR [None]
  - VISION BLURRED [None]
